FAERS Safety Report 4291267-1 (Version None)
Quarter: 2004Q1

REPORT INFORMATION
  Report Type: 
  Country: None (occurrence: None)
  Receive Date: 20040211
  Receipt Date: 20031125
  Transmission Date: 20041129
  Serious: No
  Sender: FDA-Public Use
  Company Number: US-GLAXOSMITHKLINE-A0441086A

PATIENT
  Age: 16 Year
  Sex: Male

DRUGS (3)
  1. PAXIL [Suspect]
     Indication: DEPRESSION
     Dosage: 25MG PER DAY
     Route: 048
     Dates: start: 20021201, end: 20031118
  2. CONCERTA [Concomitant]
  3. SYNTHROID [Concomitant]

REACTIONS (6)
  - CHEST PAIN [None]
  - CRYING [None]
  - FEELING HOT AND COLD [None]
  - HYPOAESTHESIA [None]
  - PARAESTHESIA [None]
  - TINNITUS [None]
